FAERS Safety Report 8465321-4 (Version None)
Quarter: 2012Q2

REPORT INFORMATION
  Report Type: 
  Country: None (occurrence: None)
  Receive Date: 20120626
  Receipt Date: 20120618
  Transmission Date: 20120825
  Serious: Yes (Hospitalization, Other)
  Sender: FDA-Public Use
  Company Number: US-BAYER-2012-061265

PATIENT
  Age: 51 Year
  Sex: Female
  Weight: 83.2 kg

DRUGS (16)
  1. PRILOSEC [Concomitant]
     Dosage: 20 MG, ONCE
  2. XYZAL [Concomitant]
     Dosage: 5 MG, UNK
  3. TOPROL-XL [Concomitant]
     Dosage: 100 MG, UNK
  4. VITAMIN D [Concomitant]
     Dosage: 50,000 UNITS TWICE WEEKLY
  5. MULTI-VITAMIN [Concomitant]
  6. HYDROCHLOROTHIAZIDE [Concomitant]
     Dosage: 25 MG, UNK
  7. ATIVAN [Concomitant]
  8. DROSPIRENONE AND ETHINYL ESTRADIOL [Suspect]
  9. FINACEA [Concomitant]
     Dosage: 15% GEL
     Dates: start: 20101012
  10. YASMIN [Suspect]
  11. LORAZEPAM [Concomitant]
     Dosage: 0.5 MG AT BEDTIME AS NEEDED
  12. FEXOFENADINE [Concomitant]
     Dosage: 180 MG, UNK
     Dates: start: 20101012
  13. NASONEX [Concomitant]
     Dosage: 2 SQUIRTS EACH NOSTRIL DAILY
  14. IBUPROFEN [Concomitant]
     Dosage: 600 MG, UNK
     Dates: start: 20100816
  15. POTASSIUM CHLORIDE [Concomitant]
  16. THIAMINE [Concomitant]

REACTIONS (3)
  - CHOLECYSTECTOMY [None]
  - THROMBOPHLEBITIS SUPERFICIAL [None]
  - DEEP VEIN THROMBOSIS [None]
